FAERS Safety Report 19623945 (Version 1)
Quarter: 2021Q3

REPORT INFORMATION
  Report Type: Spontaneous
  Country: AR (occurrence: AR)
  Receive Date: 20210728
  Receipt Date: 20210728
  Transmission Date: 20211014
  Serious: Yes (Hospitalization, Other)
  Sender: FDA-Public Use
  Company Number: NVSC2021AR159871

PATIENT
  Sex: Male

DRUGS (1)
  1. EXJADE [Suspect]
     Active Substance: DEFERASIROX
     Indication: CONGENITAL ANAEMIA
     Dosage: 1125 MG, QD (STOP DATE: 1 YEAR AGO, SPLITTED INTO TWO)
     Route: 065
     Dates: start: 2005

REACTIONS (7)
  - Iron overload [Unknown]
  - Hepatitis [Unknown]
  - Thrombosis [Unknown]
  - Wrong technique in product usage process [Unknown]
  - Product use in unapproved indication [Unknown]
  - Incorrect dose administered [Unknown]
  - Drug intolerance [Unknown]
